FAERS Safety Report 8762845 (Version 1)
Quarter: 2012Q4

REPORT INFORMATION
  Report Type: 
  Country: US (occurrence: US)
  Receive Date: 20120829
  Receipt Date: 20120829
  Transmission Date: 20130627
  Serious: No
  Sender: FDA-Public Use
  Company Number: US-PFIZER INC-2012208746

PATIENT
  Age: 83 Year
  Sex: Female
  Weight: 54 kg

DRUGS (11)
  1. ADVIL [Suspect]
     Indication: BACK PAIN
     Dosage: 200 mg, four to six times a day
     Route: 048
     Dates: start: 20120821
  2. ADVIL [Suspect]
     Indication: ARTHRITIS
  3. ADVIL [Suspect]
     Indication: MYELOPATHY
  4. FLECTOR [Suspect]
     Indication: BACK PAIN
     Dosage: UNK
     Dates: start: 20120824
  5. TRAMADOL [Suspect]
     Indication: BACK PAIN
     Dosage: 50 mg, 1x/day
     Dates: start: 20120810, end: 20120820
  6. COZAAR [Concomitant]
     Dosage: UNK
  7. VALIUM [Concomitant]
     Dosage: 5 mg, UNK
  8. LEVOXYL [Concomitant]
     Indication: HYPOTHYROIDISM
     Dosage: UNK
  9. CENTRUM SILVER [Concomitant]
     Dosage: UNK
  10. VITAMIN D3 [Concomitant]
     Dosage: 1000 units, UNK
  11. REMERON [Concomitant]
     Dosage: UNK

REACTIONS (3)
  - Constipation [Unknown]
  - Drug ineffective [Unknown]
  - Wrong technique in drug usage process [Unknown]
